FAERS Safety Report 9531387 (Version 1)
Quarter: 2013Q3

REPORT INFORMATION
  Report Type: Spontaneous
  Country: CN (occurrence: CN)
  Receive Date: 20130918
  Receipt Date: 20130918
  Transmission Date: 20140515
  Serious: Yes (Death)
  Sender: FDA-Public Use
  Company Number: CN-JNJFOC-20130907849

PATIENT
  Age: 12 Year
  Sex: Female

DRUGS (1)
  1. TOPIRAMATE [Suspect]
     Indication: EPILEPSY
     Dosage: 0.5-1 MG/KG/DAY, WITH A WEEKLY ESCALATION OF 0.5 MG/KG/DAY.
     Route: 048

REACTIONS (3)
  - Convulsion [Fatal]
  - Fall [Fatal]
  - Loss of consciousness [Fatal]
